FAERS Safety Report 14508517 (Version 3)
Quarter: 2020Q3

REPORT INFORMATION
  Report Type: Report from Study
  Country: US (occurrence: US)
  Receive Date: 20180209
  Receipt Date: 20200831
  Transmission Date: 20201102
  Serious: Yes (Hospitalization, Other)
  Sender: FDA-Public Use
  Company Number: US-BRISTOL-MYERS SQUIBB COMPANY-BMS-2018-010893

PATIENT
  Age: 55 Year
  Sex: Female
  Weight: 84.5 kg

DRUGS (4)
  1. PREDNISONE. [Suspect]
     Active Substance: PREDNISONE
     Indication: INFLAMMATION
  2. NIVOLUMAB [Suspect]
     Active Substance: NIVOLUMAB
     Indication: MALIGNANT MELANOMA
     Dosage: 82 MILLIGRAM
     Route: 065
     Dates: start: 20160601, end: 20160802
  3. IPILIMUMAB [Suspect]
     Active Substance: IPILIMUMAB
     Indication: MALIGNANT MELANOMA
     Dosage: 245 MILLIGRAM
     Route: 065
     Dates: start: 20160601, end: 20160802
  4. PREDNISONE. [Suspect]
     Active Substance: PREDNISONE
     Indication: INFECTION
     Route: 065

REACTIONS (7)
  - Lipase increased [Recovering/Resolving]
  - Pancreatitis [Unknown]
  - Vomiting [Recovered/Resolved with Sequelae]
  - Hyperglycaemia [Recovering/Resolving]
  - Nausea [Recovered/Resolved with Sequelae]
  - Hypoxia [Recovering/Resolving]
  - Adrenal insufficiency [Recovering/Resolving]

NARRATIVE: CASE EVENT DATE: 20160817
